FAERS Safety Report 11585916 (Version 1)
Quarter: 2015Q4

REPORT INFORMATION
  Report Type: Report from Study
  Country: US (occurrence: US)
  Receive Date: 20151001
  Receipt Date: 20151001
  Transmission Date: 20160304
  Serious: No
  Sender: FDA-Public Use
  Company Number: US-ABBVIE-14P-163-1287269-00

PATIENT
  Age: 76 Year
  Sex: Male
  Weight: 122.58 kg

DRUGS (3)
  1. UNKNOWN MULTIPLE MEDICATIONS [Concomitant]
     Active Substance: UNSPECIFIED INGREDIENT
     Indication: PRODUCT USED FOR UNKNOWN INDICATION
  2. ZEMPLAR [Suspect]
     Active Substance: PARICALCITOL
     Dates: start: 201405
  3. ZEMPLAR [Suspect]
     Active Substance: PARICALCITOL
     Indication: VITAMIN D DECREASED

REACTIONS (2)
  - Vitamin D decreased [Unknown]
  - Blood calcium increased [Not Recovered/Not Resolved]

NARRATIVE: CASE EVENT DATE: 201405
